FAERS Safety Report 4506172-2 (Version None)
Quarter: 2004Q4

REPORT INFORMATION
  Report Type: 
  Country: None (occurrence: None)
  Receive Date: 20041025
  Receipt Date: 20040408
  Transmission Date: 20050328
  Serious: Yes (Other)
  Sender: FDA-Public Use
  Company Number: US-JNJFOC-20040401838

PATIENT
  Age: 28 Year
  Sex: Female
  Weight: 52.1637 kg

DRUGS (6)
  1. REMICADE [Suspect]
     Indication: RHEUMATOID ARTHRITIS
     Dosage: SEE IMAGE
     Route: 042
     Dates: start: 20020101
  2. REMICADE [Suspect]
     Indication: RHEUMATOID ARTHRITIS
     Dosage: SEE IMAGE
     Route: 042
     Dates: start: 20040407
  3. VIOXX [Concomitant]
  4. ORTHO TRI-CYCLEN [Concomitant]
  5. PREDNISONE [Concomitant]
  6. LEXAPRO [Concomitant]

REACTIONS (1)
  - BRONCHOSPASM [None]
